FAERS Safety Report 19903767 (Version 1)
Quarter: 2021Q4

REPORT INFORMATION
  Report Type: Spontaneous
  Country: FR (occurrence: FR)
  Receive Date: 20211001
  Receipt Date: 20211001
  Transmission Date: 20220303
  Serious: Yes (Other)
  Sender: FDA-Public Use
  Company Number: None

PATIENT
  Age: 53 Year
  Sex: Female

DRUGS (4)
  1. VENLAFAXINE [Suspect]
     Active Substance: VENLAFAXINE HYDROCHLORIDE
     Indication: Mental disorder
     Dosage: 225 MG
     Route: 048
     Dates: start: 20201102, end: 20210408
  2. LOXAPINE [Suspect]
     Active Substance: LOXAPINE
     Indication: Mental disorder
     Dosage: 125 MG
     Route: 048
     Dates: start: 20210104, end: 20210408
  3. RISPERDAL [Suspect]
     Active Substance: RISPERIDONE
     Indication: Mental disorder
     Dosage: 6 MG
     Route: 048
     Dates: start: 20201231, end: 20210408
  4. TRANXENE [Suspect]
     Active Substance: CLORAZEPATE DIPOTASSIUM
     Indication: Mental disorder
     Dosage: 25 MG
     Route: 048
     Dates: start: 202011

REACTIONS (3)
  - Akathisia [Recovered/Resolved]
  - Muscle spasms [Recovered/Resolved]
  - Parkinsonism [Not Recovered/Not Resolved]

NARRATIVE: CASE EVENT DATE: 20210104
